FAERS Safety Report 13257502 (Version 3)
Quarter: 2017Q4

REPORT INFORMATION
  Report Type: Spontaneous
  Country: US (occurrence: US)
  Receive Date: 20170221
  Receipt Date: 20171103
  Transmission Date: 20180320
  Serious: No
  Sender: FDA-Public Use
  Company Number: US-PFIZER INC-2017070668

PATIENT
  Age: 67 Year
  Sex: Female
  Weight: 104.3 kg

DRUGS (9)
  1. ADVIL [Suspect]
     Active Substance: IBUPROFEN
     Indication: PAIN
     Dosage: ONE TIME A DAY
  2. ADVIL [Suspect]
     Active Substance: IBUPROFEN
     Indication: BACK PAIN
  3. DIGESTIVE ADVANTAGE [Concomitant]
     Indication: PROBIOTIC THERAPY
  4. ADVIL [Suspect]
     Active Substance: IBUPROFEN
     Indication: SCIATICA
     Dosage: 3 LIQUIGELS AT A TIME
  5. DIGESTIVE ADVANTAGE [Concomitant]
     Indication: IRRITABLE BOWEL SYNDROME
     Dosage: 2 BILLION, UNK
     Dates: start: 201707
  6. OMEGA XL [Concomitant]
     Active Substance: DIETARY SUPPLEMENT
     Indication: ARTHRALGIA
     Dosage: 2 TO 4 CAPSULES
  7. ADVIL [Suspect]
     Active Substance: IBUPROFEN
     Indication: BACK PAIN
     Dosage: 3 TO 6 A DAY
     Dates: start: 201709
  8. ADVIL [Suspect]
     Active Substance: IBUPROFEN
     Indication: SCIATICA
     Dosage: 3 TABLETS (DF), AT A TIME
     Dates: start: 201709
  9. LEVOTHYROXINE. [Concomitant]
     Active Substance: LEVOTHYROXINE
     Indication: THYROID DISORDER
     Dosage: 225 UG, UNK

REACTIONS (5)
  - Drug ineffective [Not Recovered/Not Resolved]
  - Fall [Unknown]
  - Intentional product use issue [Unknown]
  - Insomnia [Unknown]
  - Gait disturbance [Unknown]

NARRATIVE: CASE EVENT DATE: 201612
